FAERS Safety Report 12646078 (Version 1)
Quarter: 2016Q3

REPORT INFORMATION
  Report Type: Report from Study
  Country: US (occurrence: US)
  Receive Date: 20160811
  Receipt Date: 20160811
  Transmission Date: 20161109
  Serious: Yes (Other)
  Sender: FDA-Public Use
  Company Number: US-GILEAD-2016-0223599

PATIENT
  Age: 89 Year
  Sex: Male

DRUGS (3)
  1. IDELALISIB [Suspect]
     Active Substance: IDELALISIB
     Dosage: 150 MG, BID
     Route: 048
     Dates: start: 20150514, end: 20160406
  2. IDELALISIB [Suspect]
     Active Substance: IDELALISIB
     Dosage: 150 MG, QD
     Route: 048
     Dates: start: 20160406
  3. IDELALISIB [Suspect]
     Active Substance: IDELALISIB
     Indication: NON-HODGKIN^S LYMPHOMA
     Dosage: 150 MG, UNK
     Route: 048
     Dates: start: 20150604

REACTIONS (10)
  - Cough [Unknown]
  - Rheumatoid arthritis [Not Recovered/Not Resolved]
  - Constipation [Recovering/Resolving]
  - Abnormal faeces [Unknown]
  - Dry skin [Unknown]
  - Off label use [Unknown]
  - Dry mouth [Unknown]
  - Paranasal sinus hypersecretion [Unknown]
  - Post herpetic neuralgia [Not Recovered/Not Resolved]
  - Dyspepsia [Unknown]
